FAERS Safety Report 9170121 (Version 1)
Quarter: 2013Q1

REPORT INFORMATION
  Report Type: Spontaneous
  Country: US (occurrence: None)
  Receive Date: 20130308
  Receipt Date: 20130308
  Transmission Date: 20140127
  Serious: Yes (Hospitalization)
  Sender: FDA-Public Use
  Company Number: UTC-029558

PATIENT
  Age: 52 Year
  Sex: Male
  Weight: 123.4 kg

DRUGS (3)
  1. REMODULIN (5 MILLIGRAM/ MILLILITERS, INJECTION FOR INFUSION) (TREPROSTINIL SODIUM) [Suspect]
     Indication: COR PULMONALE CHRONIC
     Dosage: (0.025 UG/KG, 1 IN 1 MIN)
     Route: 058
     Dates: start: 20121127
  2. TRACLEER (BOSENTAN) (UNKNOWN) [Concomitant]
  3. LOVENOX (ENOXAPARIN SODIUM) (UNKNOWN) [Concomitant]

REACTIONS (1)
  - Renal failure [None]
